FAERS Safety Report 7354224-4 (Version None)
Quarter: 2011Q1

REPORT INFORMATION
  Report Type: 
  Country: None (occurrence: None)
  Receive Date: 20110316
  Receipt Date: 20110309
  Transmission Date: 20110831
  Serious: No
  Sender: FDA-Public Use
  Company Number: US-BIOGENIDEC-2011BI007829

PATIENT
  Age: 52 Year
  Sex: Female

DRUGS (1)
  1. TYSABRI [Suspect]
     Indication: MULTIPLE SCLEROSIS
     Route: 042
     Dates: start: 20101217

REACTIONS (6)
  - FATIGUE [None]
  - FOOT FRACTURE [None]
  - JOINT SPRAIN [None]
  - DRUG INEFFECTIVE [None]
  - FALL [None]
  - HICCUPS [None]
